FAERS Safety Report 14753262 (Version 1)
Quarter: 2018Q2

REPORT INFORMATION
  Report Type: Spontaneous
  Country: US (occurrence: US)
  Receive Date: 20180412
  Receipt Date: 20180412
  Transmission Date: 20180711
  Serious: No
  Sender: FDA-Public Use
  Company Number: US-PFIZER INC-2018148487

PATIENT
  Age: 19 Month
  Sex: Female

DRUGS (1)
  1. LEVOTHYROXINE SODIUM. [Suspect]
     Active Substance: LEVOTHYROXINE SODIUM
     Dosage: UNK

REACTIONS (9)
  - Dyskinesia [Unknown]
  - Hiccups [Unknown]
  - Pain [Unknown]
  - Irritability [Unknown]
  - Drug dose omission [Unknown]
  - Insomnia [Unknown]
  - Crying [Unknown]
  - Hyperhidrosis [Unknown]
  - Asthenia [Unknown]
